FAERS Safety Report 9422674 (Version 1)
Quarter: 2013Q3

REPORT INFORMATION
  Report Type: Spontaneous
  Country: US (occurrence: US)
  Receive Date: 20130726
  Receipt Date: 20130726
  Transmission Date: 20140515
  Serious: No
  Sender: FDA-Public Use
  Company Number: US-B.I. PHARMACEUTICALS,INC./RIDGEFIELD-2013-BI-22044BP

PATIENT
  Age: 58 Year
  Sex: Female
  Weight: 62 kg

DRUGS (7)
  1. AGGRENOX [Suspect]
     Indication: CEREBROVASCULAR ACCIDENT PROPHYLAXIS
     Dosage: STRENGTH: 25 MG / 200 MG; DAILY DOSE: 50 MG/ 400 MG
     Route: 048
     Dates: start: 201011
  2. GABAPENTIN [Concomitant]
     Indication: FIBROMYALGIA
     Dosage: 1800 MG
     Route: 048
  3. NADOLOL [Concomitant]
     Indication: HYPERTENSION
     Dosage: 20 MG
     Route: 048
  4. ZETIA [Concomitant]
     Indication: BLOOD CHOLESTEROL INCREASED
     Dosage: 10 MG
     Route: 048
  5. BUTALBITAL/APAP/CAFFEINE [Concomitant]
     Indication: MIGRAINE
     Dosage: STRENGTH: 50/325/40;
     Route: 048
  6. VITAMIN D [Concomitant]
     Dosage: 0.1786 MG
     Route: 048
  7. LOVAZA [Concomitant]
     Indication: BLOOD TRIGLYCERIDES INCREASED
     Dosage: 4 G
     Route: 048

REACTIONS (7)
  - Muscular weakness [Recovered/Resolved]
  - Nausea [Recovered/Resolved]
  - Visual acuity reduced [Recovered/Resolved]
  - Headache [Recovered/Resolved]
  - Neck pain [Recovered/Resolved]
  - Pain in extremity [Recovered/Resolved]
  - Confusional state [Not Recovered/Not Resolved]
